FAERS Safety Report 21527651 (Version 2)
Quarter: 2022Q4

REPORT INFORMATION
  Report Type: Report from Study
  Country: AE (occurrence: AE)
  Receive Date: 20221031
  Receipt Date: 20221223
  Transmission Date: 20230112
  Serious: Yes (Hospitalization)
  Sender: FDA-Public Use
  Company Number: AE-BIOGEN-2022BI01163809

PATIENT
  Sex: Female

DRUGS (1)
  1. SPINRAZA [Suspect]
     Active Substance: NUSINERSEN
     Indication: Spinal muscular atrophy
     Dosage: INITIATE SPINRAZA TREATMENT WITH 4 LOADING DOSES; THE FIRST THREE LOADING DOSES SHOULD BE ADMINIS...
     Route: 050
     Dates: start: 20220921

REACTIONS (1)
  - Musculoskeletal disorder [Unknown]
